FAERS Safety Report 18400026 (Version 1)
Quarter: 2020Q4

REPORT INFORMATION
  Report Type: Spontaneous
  Country: US (occurrence: US)
  Receive Date: 20201019
  Receipt Date: 20201019
  Transmission Date: 20210114
  Serious: No
  Sender: FDA-Public Use
  Company Number: US-ALLERGAN-2003968US

PATIENT
  Age: 27 Year
  Sex: Female

DRUGS (2)
  1. VRAYLAR [Suspect]
     Active Substance: CARIPRAZINE
     Indication: BIPOLAR DISORDER
     Dosage: UNK
     Route: 048
     Dates: start: 20200123
  2. VRAYLAR [Suspect]
     Active Substance: CARIPRAZINE
     Dosage: UNK
     Route: 048
     Dates: start: 201910, end: 20200123

REACTIONS (9)
  - Impaired quality of life [Recovered/Resolved]
  - Drug dose titration not performed [Unknown]
  - Reduced facial expression [Recovered/Resolved]
  - Feeding disorder [Recovered/Resolved]
  - Depression [Unknown]
  - Muscle tightness [Recovered/Resolved]
  - Speech disorder [Recovered/Resolved]
  - Swollen tongue [Recovered/Resolved]
  - Drug ineffective [Unknown]

NARRATIVE: CASE EVENT DATE: 202001
